FAERS Safety Report 6927681-2 (Version None)
Quarter: 2010Q3

REPORT INFORMATION
  Report Type: 
  Country: None (occurrence: None)
  Receive Date: 20100817
  Receipt Date: 20100702
  Transmission Date: 20110219
  Serious: No
  Sender: FDA-Public Use
  Company Number: A0869606A

PATIENT
  Sex: Male

DRUGS (1)
  1. VOTRIENT [Suspect]
     Dosage: 400MG PER DAY
     Route: 048
     Dates: start: 20100618

REACTIONS (6)
  - BACK PAIN [None]
  - CONSTIPATION [None]
  - FATIGUE [None]
  - MUSCULAR WEAKNESS [None]
  - NAUSEA [None]
  - ORAL FUNGAL INFECTION [None]
